FAERS Safety Report 25601675 (Version 1)
Quarter: 2025Q3

REPORT INFORMATION
  Report Type: Spontaneous
  Country: US (occurrence: US)
  Receive Date: 20250724
  Receipt Date: 20250724
  Transmission Date: 20251021
  Serious: No
  Sender: LUNDBECK
  Company Number: US-LUNDBECK-DKLU4017255

PATIENT
  Age: 26 Year
  Sex: Female

DRUGS (1)
  1. NORTHERA [Suspect]
     Active Substance: DROXIDOPA
     Indication: Postural orthostatic tachycardia syndrome
     Dosage: 300 MILLIGRAM
     Route: 048
     Dates: start: 202302

REACTIONS (2)
  - Dizziness [Not Recovered/Not Resolved]
  - Condition aggravated [Not Recovered/Not Resolved]

NARRATIVE: CASE EVENT DATE: 20250601
